FAERS Safety Report 6643584-5 (Version None)
Quarter: 2010Q1

REPORT INFORMATION
  Report Type: 
  Country: None (occurrence: None)
  Receive Date: 20100320
  Receipt Date: 20100311
  Transmission Date: 20100710
  Serious: Yes (Other)
  Sender: FDA-Public Use
  Company Number: US-JNJFOC-20100304468

PATIENT
  Sex: Male
  Weight: 113.4 kg

DRUGS (4)
  1. DURAGESIC-100 [Suspect]
     Indication: BACK PAIN
     Route: 062
  2. DURAGESIC-100 [Suspect]
     Dosage: ONE 100 MCG/HR PATCH AND ONE 50 MCG/HR PATCH
     Route: 062
  3. DURAGESIC-100 [Suspect]
     Dosage: ONE 100 MCG/HR PATCH AND ONE 50 MCG/HR PATCH
     Route: 062
  4. PERCOCET [Concomitant]
     Indication: BACK PAIN
     Route: 048

REACTIONS (8)
  - DEPRESSION [None]
  - DRUG INEFFECTIVE [None]
  - HYPERTENSION [None]
  - HYPOGONADISM [None]
  - HYPOTHYROIDISM [None]
  - PANIC ATTACK [None]
  - SCIATICA [None]
  - WRONG TECHNIQUE IN DRUG USAGE PROCESS [None]
